FAERS Safety Report 9387060 (Version 2)
Quarter: 2013Q4

REPORT INFORMATION
  Report Type: Spontaneous
  Country: CH (occurrence: CH)
  Receive Date: 20130708
  Receipt Date: 20131112
  Transmission Date: 20140711
  Serious: Yes (Death)
  Sender: FDA-Public Use
  Company Number: PHHY2013CH070427

PATIENT
  Age: 84 Year
  Sex: Male

DRUGS (8)
  1. CUBICIN [Suspect]
     Indication: ENDOCARDITIS
     Dosage: 8 MG/KG, 30 MINUTE INFUSION
     Route: 042
     Dates: start: 20111008
  2. RIFAMPICIN [Suspect]
     Indication: ARTHRITIS INFECTIVE
     Dosage: 600 MG,
     Route: 042
  3. ENOXAPARIN [Concomitant]
  4. MORPHINE [Concomitant]
  5. NITROGLYCERINE [Concomitant]
  6. IPRATROPIUM [Concomitant]
  7. SALBUTAMOL [Concomitant]
  8. PARACETAMOL [Concomitant]

REACTIONS (1)
  - Endocarditis [Fatal]
